FAERS Safety Report 9499057 (Version 9)
Quarter: 2014Q1

REPORT INFORMATION
  Report Type: Report from Study
  Country: ES (occurrence: ES)
  Receive Date: 20130904
  Receipt Date: 20140325
  Transmission Date: 20141002
  Serious: Yes (Hospitalization)
  Sender: FDA-Public Use
  Company Number: ES-ROCHE-1233297

PATIENT
  Age: 49 Year
  Sex: Female
  Weight: 53.4 kg

DRUGS (11)
  1. TRASTUZUMAB EMTANSINE [Suspect]
     Indication: BREAST CANCER METASTATIC
     Dosage: DATE OF LAST DOSE PRIOR TO EPIGASTRALGIA: 14/MAY/2013
     Route: 042
     Dates: start: 20130327, end: 20130605
  2. TRASTUZUMAB EMTANSINE [Suspect]
     Dosage: DATE OF LAST DOSE PRIOR TO RESPIRATORY INFECTION AND INFLAMATION OF SEROUS MEMBRANES (SEROSITIS): 12
     Route: 042
     Dates: start: 20130612, end: 20130620
  3. LORAZEPAM [Concomitant]
     Route: 065
     Dates: start: 20130320
  4. LORAZEPAM [Concomitant]
     Route: 065
     Dates: start: 20130618
  5. LORAZEPAM [Concomitant]
     Route: 065
     Dates: start: 20130603, end: 20130603
  6. ENANTYUM [Concomitant]
     Route: 065
     Dates: start: 20130605, end: 20130617
  7. ENANTYUM [Concomitant]
     Route: 065
     Dates: start: 20130618
  8. ENANTYUM [Concomitant]
     Route: 065
     Dates: start: 20130603, end: 20130603
  9. NOLOTIL [Concomitant]
     Route: 065
     Dates: start: 20130605
  10. OMEPRAZOLE [Concomitant]
     Route: 065
     Dates: start: 20130313, end: 20130605
  11. CIDINE (SPAIN) [Concomitant]
     Route: 065
     Dates: start: 20130605

REACTIONS (3)
  - Serositis [Not Recovered/Not Resolved]
  - Abdominal pain upper [Recovered/Resolved]
  - Respiratory tract infection [Not Recovered/Not Resolved]
